FAERS Safety Report 9780311 (Version 1)
Quarter: 2013Q4

REPORT INFORMATION
  Report Type: Spontaneous
  Country: FR (occurrence: FR)
  Receive Date: 20131224
  Receipt Date: 20131224
  Transmission Date: 20140711
  Serious: Yes (Other)
  Sender: FDA-Public Use
  Company Number: FR-ROCHE-1321597

PATIENT
  Age: 47 Year
  Sex: Female

DRUGS (1)
  1. ZELBORAF [Suspect]
     Indication: METASTATIC MALIGNANT MELANOMA
     Route: 048
     Dates: end: 201304

REACTIONS (11)
  - Hypothyroidism [Unknown]
  - Alopecia [Recovered/Resolved]
  - Keratosis pilaris [Unknown]
  - Dry skin [Unknown]
  - Palmoplantar keratoderma [Unknown]
  - Nail dystrophy [Unknown]
  - Photosensitivity reaction [Unknown]
  - Arthralgia [Unknown]
  - Squamous cell carcinoma [Unknown]
  - Keratoacanthoma [Unknown]
  - Malignant melanoma [Unknown]
